FAERS Safety Report 9386886 (Version 1)
Quarter: 2013Q3

REPORT INFORMATION
  Report Type: Spontaneous
  Country: GB (occurrence: None)
  Receive Date: 20130702
  Receipt Date: 20130702
  Transmission Date: 20140515
  Serious: Yes (Death, Life-Threatening, Hospitalization)
  Sender: FDA-Public Use
  Company Number: AUR-APL-2013-05234

PATIENT
  Age: 88 Year
  Sex: Female

DRUGS (2)
  1. ALENDRONIC ACID (ALENDRONIC ACID) [Suspect]
     Indication: OSTEOPOROSIS PROPHYLAXIS
     Route: 048
     Dates: end: 20050523
  2. PREDNISOLONE (PREDNISOLONE) [Suspect]
     Indication: GRANULOMATOSIS WITH POLYANGIITIS
     Route: 048
     Dates: end: 20050524

REACTIONS (5)
  - General physical health deterioration [None]
  - Oesophageal perforation [None]
  - Pneumonia aspiration [None]
  - Pneumomediastinum [None]
  - Inflammatory marker increased [None]
